FAERS Safety Report 18418984 (Version 1)
Quarter: 2020Q4

REPORT INFORMATION
  Report Type: Report from Study
  Country: DE (occurrence: DE)
  Receive Date: 20201023
  Receipt Date: 20201023
  Transmission Date: 20210114
  Serious: Yes (Hospitalization, Other)
  Sender: FDA-Public Use
  Company Number: DE-ELI_LILLY_AND_COMPANY-DE202010008832

PATIENT
  Sex: Male

DRUGS (4)
  1. VALPROIC ACID. [Suspect]
     Active Substance: VALPROIC ACID
     Indication: PRODUCT USED FOR UNKNOWN INDICATION
     Dosage: 1.600 MG, DAILY
     Route: 065
  2. OLANZAPINE. [Suspect]
     Active Substance: OLANZAPINE
     Indication: PRODUCT USED FOR UNKNOWN INDICATION
     Dosage: 7.5 MG, DAILY
     Route: 065
  3. FLUPENTIXOL DECANOATE [Suspect]
     Active Substance: FLUPENTIXOL DECANOATE
     Indication: PRODUCT USED FOR UNKNOWN INDICATION
     Dosage: 30 MG, MONTHLY (1/M)
     Route: 065
  4. FLUPENTIXOL [Suspect]
     Active Substance: FLUPENTIXOL
     Indication: PRODUCT USED FOR UNKNOWN INDICATION
     Route: 065

REACTIONS (4)
  - Coma [Unknown]
  - Acute hepatic failure [Unknown]
  - Hepatorenal syndrome [Unknown]
  - Abdominal pain upper [Unknown]
